FAERS Safety Report 5076807-7 (Version None)
Quarter: 2006Q3

REPORT INFORMATION
  Report Type: 
  Country: None (occurrence: None)
  Receive Date: 20060810
  Receipt Date: 20060802
  Transmission Date: 20061208
  Serious: Yes (Hospitalization)
  Sender: FDA-Public Use
  Company Number: US-AVENTIS-200616481US

PATIENT
  Sex: Male

DRUGS (6)
  1. LANTUS [Suspect]
     Indication: DIABETES MELLITUS NON-INSULIN-DEPENDENT
     Route: 058
     Dates: start: 20060708
  2. OPTICLIK (INSULIN INJECTION PEN) [Suspect]
     Indication: DIABETES MELLITUS NON-INSULIN-DEPENDENT
     Dosage: DOSE: UNKNOWN
     Dates: start: 20060708
  3. LOPRESSOR [Concomitant]
     Dosage: DOSE: UNKNOWN
  4. NORVASC [Concomitant]
     Dosage: DOSE: UNKNOWN
  5. SERUMLIPIDREDUCING AGENTS [Concomitant]
     Dosage: DOSE: UNKNOWN
  6. GLUCOTROL [Concomitant]
     Dosage: DOSE: UNKNOWN

REACTIONS (1)
  - PNEUMONIA [None]
